FAERS Safety Report 10196600 (Version 1)
Quarter: 2014Q2

REPORT INFORMATION
  Report Type: Spontaneous
  Country: US (occurrence: US)
  Receive Date: 20140527
  Receipt Date: 20140527
  Transmission Date: 20141212
  Serious: Yes (Hospitalization, Other)
  Sender: FDA-Public Use
  Company Number: US-PFIZER INC-2014140475

PATIENT
  Age: 27 Year
  Sex: Female
  Weight: 73 kg

DRUGS (2)
  1. LO/OVRAL-28 [Suspect]
     Indication: CONTRACEPTION
     Dosage: 1 DF, DAILY AS DIRECTED
     Route: 048
     Dates: start: 20110620
  2. CHOLECALCIFEROL [Concomitant]
     Indication: NUTRITIONAL SUPPLEMENTATION
     Dosage: 1000 IU, UNK
     Route: 048
     Dates: start: 20110616, end: 20120616

REACTIONS (4)
  - Product quality issue [Unknown]
  - Breech presentation [Unknown]
  - Drug ineffective [Unknown]
  - Unintended pregnancy [Unknown]
